FAERS Safety Report 23799265 (Version 1)
Quarter: 2024Q2

REPORT INFORMATION
  Report Type: Spontaneous
  Country: US (occurrence: None)
  Receive Date: 20240428
  Receipt Date: 20240428
  Transmission Date: 20240716
  Serious: No
  Sender: FDA-Public Use
  Company Number: None

PATIENT
  Age: 63 Year
  Sex: Male
  Weight: 110 kg

DRUGS (1)
  1. HYDRALAZINE HCL [Suspect]
     Active Substance: HYDRALAZINE HYDROCHLORIDE
     Indication: Hypertension
     Dosage: 50 MG TID PO?
     Route: 048
     Dates: start: 2018, end: 20190917

REACTIONS (4)
  - Haemoglobin decreased [None]
  - Pericardial effusion [None]
  - Cardiac tamponade [None]
  - Dialysis [None]

NARRATIVE: CASE EVENT DATE: 20180911
